FAERS Safety Report 4910889-5 (Version None)
Quarter: 2006Q1

REPORT INFORMATION
  Report Type: 
  Country: None (occurrence: None)
  Receive Date: 20060209
  Receipt Date: 20060127
  Transmission Date: 20060701
  Serious: Yes (Hospitalization)
  Sender: FDA-Public Use
  Company Number: 2006-DE-00501GD

PATIENT
  Age: 1 Year
  Sex: Female

DRUGS (8)
  1. TRIMETHOPRIM + SULFAMETHOXAZOLE [Suspect]
     Indication: PNEUMOCYSTIS JIROVECI PNEUMONIA
     Dosage: TRIMETHOPRIM 20 MG/KG, SULFAMETHOXAZOLE 100 MG/KG
  2. AZATHIOPRINE [Suspect]
     Indication: EOSINOPHILIC PNEUMONIA
  3. METHYLPREDNISOLONE [Suspect]
     Indication: EOSINOPHILIC PNEUMONIA
     Dosage: 2 MG/KG
  4. MIDAZOLAM HCL [Concomitant]
  5. MORPHINE [Concomitant]
  6. CIPROFLOXACIN [Concomitant]
  7. ACYCLOVIR [Concomitant]
  8. FLUCONAZOLE [Concomitant]

REACTIONS (5)
  - CHOREA [None]
  - DYSKINESIA [None]
  - PNEUMOCYSTIS JIROVECI PNEUMONIA [None]
  - RESPIRATORY FAILURE [None]
  - TREMOR [None]
